FAERS Safety Report 11795875 (Version 1)
Quarter: 2015Q4

REPORT INFORMATION
  Report Type: Spontaneous
  Country: US (occurrence: US)
  Receive Date: 20151203
  Receipt Date: 20151203
  Transmission Date: 20160305
  Serious: No
  Sender: FDA-Public Use
  Company Number: US-ASTRAZENECA-2015SF12309

PATIENT
  Sex: Male
  Weight: 131.5 kg

DRUGS (8)
  1. GLIMEPIRIDE. [Concomitant]
     Active Substance: GLIMEPIRIDE
  2. CARVEDILOL. [Concomitant]
     Active Substance: CARVEDILOL
  3. ISOSORBIDE. [Concomitant]
     Active Substance: ISOSORBIDE
  4. FENOFIBRATE. [Concomitant]
     Active Substance: FENOFIBRATE
     Indication: BLOOD CHOLESTEROL ABNORMAL
     Dosage: MG
  5. BYDUREON [Suspect]
     Active Substance: EXENATIDE
     Indication: DIABETES MELLITUS
     Dosage: 2 ONCE A WEEK
     Route: 058
  6. CRESTOR [Suspect]
     Active Substance: ROSUVASTATIN CALCIUM
     Route: 048
  7. NEXIUM [Suspect]
     Active Substance: ESOMEPRAZOLE MAGNESIUM
     Route: 048
  8. VASOPRIL [Concomitant]
     Active Substance: FOSINOPRIL

REACTIONS (3)
  - Hypophagia [Unknown]
  - Abdominal pain [Unknown]
  - Blood glucose decreased [Unknown]
